FAERS Safety Report 5273754-2 (Version None)
Quarter: 2007Q1

REPORT INFORMATION
  Report Type: 
  Country: None (occurrence: None)
  Receive Date: 20070321
  Receipt Date: 20070321
  Transmission Date: 20070707
  Serious: Yes (Other)
  Sender: FDA-Public Use
  Company Number: None

PATIENT
  Sex: Female
  Weight: 61.2356 kg

DRUGS (1)
  1. ASPIRIN [Suspect]
     Dosage: 81 MG

REACTIONS (4)
  - DRUG ADMINISTRATION ERROR [None]
  - FEELING COLD [None]
  - NASOPHARYNGEAL DISORDER [None]
  - TREMOR [None]
